FAERS Safety Report 23411015 (Version 3)
Quarter: 2024Q1

REPORT INFORMATION
  Report Type: Spontaneous
  Country: AT (occurrence: AT)
  Receive Date: 20240117
  Receipt Date: 20240227
  Transmission Date: 20240410
  Serious: Yes (Death, Hospitalization, Other)
  Sender: FDA-Public Use
  Company Number: AT-GILEAD-2024-0657900

PATIENT
  Age: 56 Year
  Sex: Female
  Weight: 55 kg

DRUGS (3)
  1. TECARTUS [Suspect]
     Active Substance: BREXUCABTAGENE AUTOLEUCEL
     Indication: Burkitt^s lymphoma
     Dosage: UNK
     Route: 042
     Dates: start: 20221228, end: 20221228
  2. FLUDARABINE [Concomitant]
     Active Substance: FLUDARABINE PHOSPHATE
     Indication: Lymphodepletion
     Dosage: 90 MG/M2
  3. CYCLOPHOSPHAMIDE [Concomitant]
     Active Substance: CYCLOPHOSPHAMIDE
     Dosage: 1500 MG/M2

REACTIONS (7)
  - Multiple organ dysfunction syndrome [Fatal]
  - Vascular device infection [Unknown]
  - Brain oedema [Fatal]
  - Sepsis [Fatal]
  - Cytokine release syndrome [Unknown]
  - Immune effector cell-associated neurotoxicity syndrome [Unknown]
  - Off label use [Recovered/Resolved]

NARRATIVE: CASE EVENT DATE: 20230328
